FAERS Safety Report 7655562-8 (Version None)
Quarter: 2011Q3

REPORT INFORMATION
  Report Type: 
  Country: None (occurrence: None)
  Receive Date: 20110804
  Receipt Date: 20110725
  Transmission Date: 20111222
  Serious: Yes (Other)
  Sender: FDA-Public Use
  Company Number: JP-JNJFOC-20110411483

PATIENT
  Sex: Male
  Weight: 76 kg

DRUGS (14)
  1. REMICADE [Suspect]
     Route: 042
     Dates: start: 20040310
  2. AZULFIDINE [Concomitant]
     Indication: RHEUMATOID ARTHRITIS
     Route: 048
     Dates: start: 20080206
  3. REMICADE [Suspect]
     Route: 042
     Dates: start: 20060412
  4. FOLIC ACID [Concomitant]
     Indication: FOLATE DEFICIENCY
     Route: 048
     Dates: start: 20060830
  5. REMICADE [Suspect]
     Indication: RHEUMATOID ARTHRITIS
     Route: 042
     Dates: start: 20080402
  6. REMICADE [Suspect]
     Route: 042
     Dates: start: 20060215
  7. LENDORMIN [Concomitant]
     Indication: INSOMNIA
     Route: 048
     Dates: start: 20070919
  8. LOSARTAN POTASSIUM AND HYDROCHLOROTHIAZIDE [Concomitant]
     Indication: HYPERTENSION
     Route: 065
     Dates: start: 20080402
  9. LOXONIN [Concomitant]
     Indication: RHEUMATOID ARTHRITIS
     Route: 048
     Dates: start: 20100630
  10. REMICADE [Suspect]
     Route: 042
     Dates: start: 20080402
  11. REMICADE [Suspect]
     Route: 042
     Dates: start: 20100818
  12. METHOTREXATE [Suspect]
     Indication: RHEUMATOID ARTHRITIS
     Dosage: 6 MG/W
     Route: 048
     Dates: start: 20060515
  13. PREDNISOLONE [Concomitant]
     Indication: RHEUMATOID ARTHRITIS
     Route: 048
     Dates: start: 20060111
  14. FAMOTIDINE [Concomitant]
     Indication: GASTRIC ULCER
     Route: 048
     Dates: start: 20080206

REACTIONS (2)
  - PURULENT SYNOVITIS [None]
  - SYNOVIAL CYST [None]
